FAERS Safety Report 4887227-X (Version None)
Quarter: 2006Q1

REPORT INFORMATION
  Report Type: 
  Country: None (occurrence: None)
  Receive Date: 20060120
  Receipt Date: 20051226
  Transmission Date: 20060701
  Serious: Yes (Hospitalization)
  Sender: FDA-Public Use
  Company Number: KR-SANOFI-SYNTHELABO-A01200509078

PATIENT
  Sex: Male
  Weight: 68 kg

DRUGS (7)
  1. ELOXATIN [Suspect]
     Indication: GASTRIC CANCER
     Route: 042
     Dates: start: 20051108, end: 20051108
  2. FLUOROURACIL [Concomitant]
     Indication: GASTRIC CANCER
     Dosage: 1800 MG, 2 TIMES
     Route: 042
     Dates: start: 20051108, end: 20051110
  3. OMEPRAZOLE [Concomitant]
     Indication: ULCER
     Route: 048
     Dates: start: 20051110, end: 20051118
  4. GELMA [Concomitant]
     Route: 048
     Dates: start: 20051110, end: 20051118
  5. MOTILIUM-M [Concomitant]
     Route: 048
     Dates: start: 20051110, end: 20051118
  6. AZINTAL [Concomitant]
     Route: 048
     Dates: start: 20051110, end: 20051118
  7. LEUCOVORIN [Concomitant]
     Indication: GASTRIC CANCER
     Route: 042
     Dates: start: 20051108, end: 20051108

REACTIONS (4)
  - DECREASED APPETITE [None]
  - DEHYDRATION [None]
  - RENAL IMPAIRMENT [None]
  - TUMOUR HAEMORRHAGE [None]
